FAERS Safety Report 22287865 (Version 1)
Quarter: 2023Q2

REPORT INFORMATION
  Report Type: Spontaneous
  Country: JP (occurrence: JP)
  Receive Date: 20230505
  Receipt Date: 20230505
  Transmission Date: 20230722
  Serious: Yes (Hospitalization, Other)
  Sender: FDA-Public Use
  Company Number: JP-SA2023SA-081027

PATIENT
  Age: 75 Year
  Sex: Male

DRUGS (9)
  1. CLOPIDOGREL [Suspect]
     Active Substance: CLOPIDOGREL BISULFATE
     Indication: Atrial fibrillation
  2. PRASUGREL HYDROCHLORIDE [Suspect]
     Active Substance: PRASUGREL HYDROCHLORIDE
     Indication: Atrial fibrillation
  3. EDOXABAN [Suspect]
     Active Substance: EDOXABAN
     Indication: Atrial fibrillation
  4. RIVAROXABAN [Suspect]
     Active Substance: RIVAROXABAN
     Indication: Atrial fibrillation
  5. ASPIRIN [Suspect]
     Active Substance: ASPIRIN
     Indication: Acute myocardial infarction
  6. ASPIRIN [Suspect]
     Active Substance: ASPIRIN
     Indication: Atrial fibrillation
  7. CLOPIDOGREL [Suspect]
     Active Substance: CLOPIDOGREL BISULFATE
     Indication: Acute myocardial infarction
  8. EDOXABAN [Suspect]
     Active Substance: EDOXABAN
     Indication: Acute myocardial infarction
  9. RIVAROXABAN [Suspect]
     Active Substance: RIVAROXABAN
     Indication: Acute myocardial infarction

REACTIONS (2)
  - Microcytic anaemia [Recovering/Resolving]
  - Gastrointestinal haemorrhage [Recovering/Resolving]
